FAERS Safety Report 18674217 (Version 1)
Quarter: 2020Q4

REPORT INFORMATION
  Report Type: Spontaneous
  Country: FR (occurrence: FR)
  Receive Date: 20201228
  Receipt Date: 20201228
  Transmission Date: 20210114
  Serious: Yes (Death)
  Sender: FDA-Public Use
  Company Number: FR-LUPIN PHARMACEUTICALS INC.-2020-10806

PATIENT
  Age: 23 Year
  Sex: Female

DRUGS (2)
  1. ARTESUNATE [Suspect]
     Active Substance: ARTESUNATE
     Indication: EBOLA DISEASE
     Dosage: 2.4 MILLIGRAM/KILOGRAM, UNK
     Route: 042
     Dates: start: 2019
  2. CEFTRIAXONE. [Suspect]
     Active Substance: CEFTRIAXONE
     Indication: EBOLA DISEASE
     Dosage: 2 GRAM, UNK
     Route: 042
     Dates: start: 2019

REACTIONS (2)
  - Normal newborn [Unknown]
  - Exposure during pregnancy [Unknown]

NARRATIVE: CASE EVENT DATE: 2019
